FAERS Safety Report 13213405 (Version 1)
Quarter: 2017Q1

REPORT INFORMATION
  Report Type: Spontaneous
  Country: US (occurrence: US)
  Receive Date: 20170210
  Receipt Date: 20170210
  Transmission Date: 20170428
  Serious: No
  Sender: FDA-Public Use
  Company Number: US-PFIZER INC-2017054333

PATIENT
  Sex: Female

DRUGS (2)
  1. VICODIN [Suspect]
     Active Substance: ACETAMINOPHEN\HYDROCODONE BITARTRATE
  2. ERYTHROMYCIN. [Suspect]
     Active Substance: ERYTHROMYCIN

REACTIONS (1)
  - Drug hypersensitivity [Unknown]
